FAERS Safety Report 7593466-X (Version None)
Quarter: 2011Q3

REPORT INFORMATION
  Report Type: 
  Country: None (occurrence: None)
  Receive Date: 20110706
  Receipt Date: 20110701
  Transmission Date: 20111222
  Serious: Yes (Hospitalization)
  Sender: FDA-Public Use
  Company Number: DK-PFIZER INC-2011019136

PATIENT
  Age: 64 Year
  Sex: Male
  Weight: 78 kg

DRUGS (7)
  1. HYDROCORTISONE [Concomitant]
  2. SIMVASTATIN [Concomitant]
     Dosage: 40 MG, 1X/DAY
  3. PANTOPRAZOLE [Concomitant]
     Dosage: 40 MG, 1X/DAY
  4. LEVOTHYROXINE SODIUM [Concomitant]
     Dosage: 100 UG, 1X/DAY
  5. TESTOVIRON [Concomitant]
     Dosage: 135 MG, UNK
  6. FERRO C [Concomitant]
     Dosage: 1 DF, 1X/DAY
  7. SOMATROPIN [Suspect]
     Indication: HYPOPITUITARISM
     Dosage: 0.2 MG, 1X/DAY
     Dates: start: 20060919

REACTIONS (1)
  - PITUITARY TUMOUR BENIGN [None]
